FAERS Safety Report 11493127 (Version 1)
Quarter: 2015Q3

REPORT INFORMATION
  Report Type: Spontaneous
  Country: IN (occurrence: IN)
  Receive Date: 20150911
  Receipt Date: 20150911
  Transmission Date: 20151125
  Serious: No
  Sender: FDA-Public Use
  Company Number: IN-LUPIN PHARMACEUTICALS INC.-E2B_00003921

PATIENT
  Age: 70 Year
  Sex: Male

DRUGS (3)
  1. R-CIN [Suspect]
     Active Substance: RIFAMPIN
     Indication: TUBERCULOSIS
     Route: 048
     Dates: start: 20150630
  2. AKT-4 [Suspect]
     Active Substance: ETHAMBUTOL HYDROCHLORIDE\ISONIAZID\PYRAZINAMIDE\RIFAMYCIN
     Indication: TUBERCULOSIS
     Route: 065
     Dates: start: 20150615, end: 20150715
  3. GLIMISON [Concomitant]
     Indication: DIABETES MELLITUS
     Route: 065

REACTIONS (1)
  - Chromaturia [Recovered/Resolved]

NARRATIVE: CASE EVENT DATE: 20150630
